FAERS Safety Report 17977612 (Version 3)
Quarter: 2020Q3

REPORT INFORMATION
  Report Type: Report from Study
  Country: IN (occurrence: IN)
  Receive Date: 20200703
  Receipt Date: 20200831
  Transmission Date: 20201103
  Serious: Yes (Other)
  Sender: FDA-Public Use
  Company Number: NVSC2020IN186611

PATIENT
  Age: 37 Year
  Sex: Male

DRUGS (5)
  1. SCAPHO [Suspect]
     Active Substance: SECUKINUMAB
     Indication: PSORIATIC ARTHROPATHY
     Dosage: 150 MG, QMO
     Route: 058
     Dates: start: 20200625
  2. SCAPHO [Suspect]
     Active Substance: SECUKINUMAB
     Indication: ANKYLOSING SPONDYLITIS
     Dosage: 150 MG
     Route: 058
  3. ETOSHINE [Concomitant]
     Indication: PAIN
     Dosage: UNK, QD
     Route: 065
  4. SCAPHO [Suspect]
     Active Substance: SECUKINUMAB
     Dosage: 150 MG, QMO (ONCE IN A 4 WEEKS)
     Route: 058
     Dates: start: 20200722
  5. ZINCTAB [Concomitant]
     Indication: PAIN
     Dosage: UNK, QD
     Route: 065

REACTIONS (5)
  - Arthralgia [Unknown]
  - COVID-19 [Unknown]
  - Joint stiffness [Unknown]
  - Swelling [Unknown]
  - Drug ineffective [Unknown]

NARRATIVE: CASE EVENT DATE: 20200815
